FAERS Safety Report 5964520-0 (Version None)
Quarter: 2008Q4

REPORT INFORMATION
  Report Type: 
  Country: None (occurrence: None)
  Receive Date: 20081125
  Receipt Date: 20081107
  Transmission Date: 20090506
  Serious: Yes (Death)
  Sender: FDA-Public Use
  Company Number: JP-JNJFOC-20081006244

PATIENT

DRUGS (1)
  1. DUROTEP [Suspect]
     Indication: PAIN
     Route: 062

REACTIONS (2)
  - DISEASE PROGRESSION [None]
  - NAUSEA [None]
